FAERS Safety Report 8177820-3 (Version None)
Quarter: 2012Q1

REPORT INFORMATION
  Report Type: 
  Country: None (occurrence: None)
  Receive Date: 20120301
  Receipt Date: 20120216
  Transmission Date: 20120608
  Serious: Yes (Other)
  Sender: FDA-Public Use
  Company Number: US-MYLANLABS-2012S1003874

PATIENT
  Age: 6 Decade
  Sex: Female

DRUGS (4)
  1. CYCLOPHOSPHAMIDE [Concomitant]
     Indication: BREAST CANCER
     Route: 065
     Dates: start: 19950101
  2. ALENDRONIC ACID [Suspect]
     Indication: OSTEOPOROSIS
     Dosage: SYSTEMIC THERAPY
     Route: 065
     Dates: start: 19950101
  3. FLUOROURACIL [Concomitant]
     Indication: BREAST CANCER
     Route: 065
     Dates: start: 19950101
  4. METHOTREXATE [Concomitant]
     Indication: BREAST CANCER
     Route: 065
     Dates: start: 19950101

REACTIONS (1)
  - OSTEOMA CUTIS [None]
